FAERS Safety Report 18147312 (Version 1)
Quarter: 2020Q3

REPORT INFORMATION
  Report Type: Spontaneous
  Country: US (occurrence: US)
  Receive Date: 20200814
  Receipt Date: 20200814
  Transmission Date: 20201103
  Serious: Yes (Other)
  Sender: FDA-Public Use
  Company Number: US-MACLEODS PHARMACEUTICALS US LTD-MAC2020027648

PATIENT

DRUGS (1)
  1. TRIAMCINOLONE ACETONIDE. [Suspect]
     Active Substance: TRIAMCINOLONE ACETONIDE
     Indication: AGE-RELATED MACULAR DEGENERATION
     Dosage: UNK, 4 MG/0.1 ML, PRESERVETIVE FREE AND TRIESENCE

REACTIONS (1)
  - Non-infectious endophthalmitis [Unknown]
